FAERS Safety Report 8802155 (Version 1)
Quarter: 2012Q4

REPORT INFORMATION
  Report Type: 
  Country: US (occurrence: US)
  Receive Date: 20120921
  Receipt Date: 20120921
  Transmission Date: 20130627
  Serious: Yes (Other)
  Sender: FDA-Public Use
  Company Number: PHEH2012US018319

PATIENT
  Age: 57 Year
  Sex: Female
  Weight: 67.12 kg

DRUGS (2)
  1. GILENYA [Suspect]
     Indication: MULTIPLE SCLEROSIS
     Dosage: 0.5 mg, QD
     Route: 048
     Dates: start: 20110913
  2. AMANTADINE [Concomitant]
     Dosage: 100 mg, BID
     Dates: start: 20120828

REACTIONS (5)
  - Memory impairment [Recovering/Resolving]
  - Incoherent [Recovering/Resolving]
  - Head injury [Recovering/Resolving]
  - Renal impairment [Recovering/Resolving]
  - Fall [Recovering/Resolving]
